FAERS Safety Report 14467554 (Version 3)
Quarter: 2018Q1

REPORT INFORMATION
  Report Type: Spontaneous
  Country: US (occurrence: US)
  Receive Date: 20180131
  Receipt Date: 20180319
  Transmission Date: 20180509
  Serious: No
  Sender: FDA-Public Use
  Company Number: US-GLAXOSMITHKLINE-US2018015940

PATIENT
  Age: 22 Year
  Sex: Male

DRUGS (1)
  1. NICORETTE [Suspect]
     Active Substance: NICOTINE
     Indication: SMOKING CESSATION THERAPY
     Dosage: (I USE ONE LOZENGE EVERY 4-5 HOURS.)
     Dates: end: 20180121

REACTIONS (2)
  - Product quality issue [Unknown]
  - Drug ineffective [Unknown]
